FAERS Safety Report 23419056 (Version 1)
Quarter: 2024Q1

REPORT INFORMATION
  Report Type: Report from Study
  Country: US (occurrence: US)
  Receive Date: 20240118
  Receipt Date: 20240118
  Transmission Date: 20240409
  Serious: Yes (Hospitalization)
  Sender: FDA-Public Use
  Company Number: US-PFIZER INC-PV202400004638

PATIENT
  Age: 63 Year
  Sex: Female
  Weight: 50.7 kg

DRUGS (18)
  1. CYTARABINE [Suspect]
     Active Substance: CYTARABINE
     Indication: Acute myeloid leukaemia
     Dosage: 3000 MG, 1X/DAY (3000 MG,1 IN 1 D)
     Route: 042
     Dates: start: 20231016, end: 20231020
  2. NKX-101 [Suspect]
     Active Substance: NKX-101
     Indication: Acute myeloid leukaemia
     Dosage: 1.5X10*9 CELLS
     Route: 042
     Dates: start: 20231023
  3. NKX-101 [Suspect]
     Active Substance: NKX-101
     Indication: Myelodysplastic syndrome
     Dosage: 1.5X10*9 CELLS
     Route: 042
     Dates: start: 20231030
  4. NKX-101 [Suspect]
     Active Substance: NKX-101
     Dosage: 2.24X10*8 CELLS
     Route: 042
     Dates: start: 20231106
  5. FLUDARABINE [Suspect]
     Active Substance: FLUDARABINE PHOSPHATE
     Indication: Acute myeloid leukaemia
     Dosage: 30 MG, 1X/DAY (30 MG,1 IN 1 D)
     Dates: start: 20231016, end: 20231020
  6. FLUDARABINE [Suspect]
     Active Substance: FLUDARABINE PHOSPHATE
     Indication: Myelodysplastic syndrome
  7. ACYCLOVIR [Concomitant]
     Active Substance: ACYCLOVIR
     Indication: Antiviral prophylaxis
     Dosage: UNK
     Route: 048
     Dates: start: 20230925
  8. CIPROFLOXACIN [Concomitant]
     Active Substance: CIPROFLOXACIN
     Indication: Prophylaxis
     Dosage: UNK
     Route: 048
     Dates: start: 20230925
  9. POSACONAZOLE [Concomitant]
     Active Substance: POSACONAZOLE
     Indication: Prophylaxis
     Dosage: UNK
     Route: 048
     Dates: start: 20230622
  10. ALLOPURINOL [Concomitant]
     Active Substance: ALLOPURINOL
     Indication: Prophylaxis
     Dosage: UNK
     Route: 048
     Dates: start: 20231016
  11. BACTRIM [Concomitant]
     Active Substance: SULFAMETHOXAZOLE\TRIMETHOPRIM
     Indication: Prophylaxis
     Dosage: UNK
     Route: 048
     Dates: start: 20231016
  12. PRED FORTE [Concomitant]
     Active Substance: PREDNISOLONE ACETATE
     Indication: Prophylaxis
     Dosage: UNK
     Route: 061
     Dates: start: 20231014
  13. ONDANSETRON [Concomitant]
     Active Substance: ONDANSETRON
     Indication: Nausea
     Dosage: UNK
     Route: 048
     Dates: start: 20231016
  14. VANCOMYCIN [Concomitant]
     Active Substance: VANCOMYCIN
     Indication: Chills
     Dosage: UNK
     Route: 042
     Dates: start: 20231030, end: 20231031
  15. CARBOXYMETHYLCELLULOSE SODIUM [Concomitant]
     Active Substance: CARBOXYMETHYLCELLULOSE SODIUM
     Indication: Eye pain
     Dosage: UNK
     Route: 061
     Dates: start: 20231030
  16. CEFEPIME [Concomitant]
     Active Substance: CEFEPIME HYDROCHLORIDE
     Indication: Chills
     Dosage: UNK
     Route: 042
     Dates: start: 20231030, end: 20231031
  17. TOBRAMYCIN [Concomitant]
     Active Substance: TOBRAMYCIN
     Indication: Eye pain
     Dosage: UNK
     Route: 061
     Dates: start: 20231030, end: 20231106
  18. OXYMETAZOLINE [Concomitant]
     Active Substance: OXYMETAZOLINE
     Indication: Epistaxis
     Dosage: UNK
     Route: 045
     Dates: start: 20231102, end: 20231103

REACTIONS (1)
  - Febrile neutropenia [Recovered/Resolved]

NARRATIVE: CASE EVENT DATE: 20231106
